FAERS Safety Report 14546084 (Version 2)
Quarter: 2018Q1

REPORT INFORMATION
  Report Type: Report from Study
  Country: MX (occurrence: MX)
  Receive Date: 20180219
  Receipt Date: 20180302
  Transmission Date: 20180509
  Serious: Yes (Other)
  Sender: FDA-Public Use
  Company Number: MX-ORION CORPORATION ORION PHARMA-ENTC2018-0059

PATIENT
  Age: 72 Year
  Sex: Female

DRUGS (5)
  1. TAFITRAM [Concomitant]
     Route: 065
     Dates: start: 20180202
  2. STALEVO [Suspect]
     Active Substance: CARBIDOPA\ENTACAPONE\LEVODOPA
     Indication: PARKINSON^S DISEASE
     Dosage: STRENGTH: 100/25/200 MG
     Route: 048
     Dates: start: 201801
  3. EUTIROX [Concomitant]
     Active Substance: LEVOTHYROXINE SODIUM
     Route: 065
  4. NEUROBION [Concomitant]
     Active Substance: CYANOCOBALAMIN\PYRIDOXINE\THIAMINE
     Route: 065
  5. TAFIL [Concomitant]
     Active Substance: ALPRAZOLAM
     Route: 065

REACTIONS (9)
  - Haematoma [Unknown]
  - Depression [Not Recovered/Not Resolved]
  - Ocular hyperaemia [Unknown]
  - Vision blurred [Unknown]
  - Rib fracture [Unknown]
  - Muscle rigidity [Unknown]
  - Face injury [Recovering/Resolving]
  - Fall [Not Recovered/Not Resolved]
  - Cerebrovascular accident [Unknown]

NARRATIVE: CASE EVENT DATE: 20180204
